FAERS Safety Report 10269270 (Version 1)
Quarter: 2014Q3

REPORT INFORMATION
  Report Type: Spontaneous
  Country: NL (occurrence: NL)
  Receive Date: 20140701
  Receipt Date: 20140701
  Transmission Date: 20150326
  Serious: Yes (Other)
  Sender: FDA-Public Use
  Company Number: NL-AMGEN-NLDSP2012086130

PATIENT
  Age: 59 Year
  Sex: Male

DRUGS (2)
  1. PEGINTRON [Concomitant]
     Active Substance: PEGINTERFERON ALFA-2B
  2. ARANESP [Suspect]
     Active Substance: DARBEPOETIN ALFA
     Indication: NEPHROGENIC ANAEMIA
     Dosage: 150 MUG, QWK
     Route: 058
     Dates: start: 20120824, end: 20121116

REACTIONS (5)
  - Constipation [Unknown]
  - Anaemia [Unknown]
  - Dyspnoea [Unknown]
  - Influenza like illness [Unknown]
  - Aphagia [Unknown]

NARRATIVE: CASE EVENT DATE: 20121001
